FAERS Safety Report 9587749 (Version 1)
Quarter: 2013Q4

REPORT INFORMATION
  Report Type: Spontaneous
  Country: US (occurrence: US)
  Receive Date: 20131003
  Receipt Date: 20131003
  Transmission Date: 20140711
  Serious: No
  Sender: FDA-Public Use
  Company Number: US-COVIDIEN/TYCO HEALTHCARE/MALLINCKRODT-T201303679

PATIENT
  Age: 36 Year
  Sex: Female
  Weight: 52.61 kg

DRUGS (8)
  1. EXALGO EXTENDED RELEASE [Suspect]
     Indication: TORTICOLLIS
     Dosage: 16 MG, QD
     Route: 048
     Dates: start: 201305
  2. TIZANIDINE [Concomitant]
     Dosage: UNK
  3. PERCOCET                           /00446701/ [Concomitant]
     Dosage: UNK
  4. TOPAMAX [Concomitant]
     Dosage: UNK
  5. WELLBUTRIN [Concomitant]
     Dosage: UNK
  6. AMBIEN [Concomitant]
     Dosage: UNK
  7. ELAVIL                             /00002202/ [Concomitant]
     Dosage: UNK
  8. LIDODERM [Concomitant]
     Dosage: UNK

REACTIONS (1)
  - Drug screen negative [Not Recovered/Not Resolved]
